FAERS Safety Report 9703356 (Version 1)
Quarter: 2013Q4

REPORT INFORMATION
  Report Type: Spontaneous
  Country: US (occurrence: US)
  Receive Date: 20131122
  Receipt Date: 20131122
  Transmission Date: 20140711
  Serious: Yes (Other)
  Sender: FDA-Public Use
  Company Number: PHEH2013US024245

PATIENT
  Sex: Female

DRUGS (19)
  1. DIOVAN [Suspect]
     Dosage: 1 DF PER DAY
  2. AMLODIPINE BESYLATE [Suspect]
     Dosage: 1 DF (10 MG), PER DAY AT NIGHT
  3. PROAIR HFA [Concomitant]
     Dosage: 90 UG, 2 PUFFS Q6H
  4. FAMOTIDINE [Concomitant]
     Dosage: 1 DF, PER DAY
  5. TEMAZEPAM [Concomitant]
     Dosage: 2 DF, (1 TAB 30 MG AND 1 TAB 15MG EVERY NIGHT TO GO TO BED)
  6. ZALEPLON [Concomitant]
     Dosage: 10 MG, (ONLY USE THIS IF WAKE UP AT 2 OR 3AM)
  7. SPIRIVA [Concomitant]
     Dosage: 2 PULLS, PRN
  8. QVAR [Concomitant]
     Dosage: 80 UG, 2 PUFF A DAY
  9. JANUVIA [Concomitant]
     Dosage: 1 DF, PER DAY
  10. TOPROL XL [Concomitant]
     Dosage: 2 DF, PER DAY
  11. EFFEXOR [Concomitant]
     Dosage: UNK UKN, UNK
  12. HYDROXYCHLOROQUINE [Concomitant]
     Dosage: 2 DF, PER DAY
  13. NEXUM [Concomitant]
     Dosage: 2 DF, PER DAY
  14. BABY ASPIRIN [Concomitant]
     Dosage: 1 DF, PER DAY
  15. ZETIA [Concomitant]
     Dosage: 1 DF, PER DAY
  16. LEVOTHYROXINE [Concomitant]
     Dosage: 1 DF, PER DAY
  17. VITAMIN D3 [Concomitant]
     Dosage: 1 DF, PER DAY
  18. CRESTOR [Concomitant]
     Dosage: 1 DF, PER DAY
  19. CYANOCOBALAMIN [Concomitant]
     Dosage: 1000 MG/ML, (ONCE A MONTH)

REACTIONS (2)
  - Chronic obstructive pulmonary disease [Unknown]
  - Muscle spasms [Unknown]
